FAERS Safety Report 21187282 (Version 1)
Quarter: 2022Q3

REPORT INFORMATION
  Report Type: Spontaneous
  Country: US (occurrence: None)
  Receive Date: 20220808
  Receipt Date: 20220808
  Transmission Date: 20221026
  Serious: Yes (Life-Threatening, Hospitalization, Other)
  Sender: FDA-Public Use
  Company Number: None

PATIENT
  Age: 64 Year
  Sex: Female
  Weight: 67.5 kg

DRUGS (1)
  1. BEBTELOVIMAB [Suspect]
     Active Substance: BEBTELOVIMAB
     Indication: COVID-19

REACTIONS (6)
  - Chills [None]
  - Confusional state [None]
  - Seizure [None]
  - Hyperhidrosis [None]
  - Hypotension [None]
  - Cardio-respiratory arrest [None]

NARRATIVE: CASE EVENT DATE: 20220805
